FAERS Safety Report 14498004 (Version 1)
Quarter: 2018Q1

REPORT INFORMATION
  Report Type: Spontaneous
  Country: US (occurrence: US)
  Receive Date: 20180207
  Receipt Date: 20180207
  Transmission Date: 20180509
  Serious: No
  Sender: FDA-Public Use
  Company Number: US-009507513-1801USA008007

PATIENT
  Age: 30 Year
  Sex: Female
  Weight: 115.19 kg

DRUGS (1)
  1. NEXPLANON [Suspect]
     Active Substance: ETONOGESTREL
     Indication: CONTRACEPTION
     Dosage: 1 DF, UNK
     Route: 059
     Dates: start: 20171027

REACTIONS (5)
  - Skin irritation [Unknown]
  - Device expulsion [Unknown]
  - Keloid scar [Unknown]
  - Pain in extremity [Unknown]
  - Tenderness [Unknown]

NARRATIVE: CASE EVENT DATE: 20180114
